FAERS Safety Report 5905256-1 (Version None)
Quarter: 2008Q4

REPORT INFORMATION
  Report Type: 
  Country: None (occurrence: None)
  Receive Date: 20081001
  Receipt Date: 20080922
  Transmission Date: 20090506
  Serious: Yes (Other)
  Sender: FDA-Public Use
  Company Number: BR-PFIZER INC-2008034510

PATIENT
  Sex: Male
  Weight: 70 kg

DRUGS (3)
  1. XALATAN [Suspect]
     Indication: GLAUCOMA
     Route: 031
     Dates: start: 20060101, end: 20080801
  2. GLUCOBAY [Concomitant]
     Route: 048
  3. LEXOTAN [Concomitant]
     Route: 048
     Dates: start: 20080414

REACTIONS (4)
  - CHROMATOPSIA [None]
  - INTRAOCULAR PRESSURE INCREASED [None]
  - VISION BLURRED [None]
  - VISUAL IMPAIRMENT [None]
